FAERS Safety Report 4817378-7 (Version None)
Quarter: 2005Q4

REPORT INFORMATION
  Report Type: 
  Country: None (occurrence: None)
  Receive Date: 20051031
  Receipt Date: 20051019
  Transmission Date: 20060501
  Serious: Yes (Hospitalization)
  Sender: FDA-Public Use
  Company Number: US-2005-021949

PATIENT
  Age: 72 Year
  Sex: Female

DRUGS (1)
  1. ULTRAVIST 370 [Suspect]
     Indication: COMPUTERISED TOMOGRAM
     Dosage: 90 ML, 1 DOSE, INTRAVENOUS
     Route: 042
     Dates: start: 20051018, end: 20051018

REACTIONS (7)
  - ERYTHEMA [None]
  - HYPERHIDROSIS [None]
  - NASAL DISCOMFORT [None]
  - PRURITUS [None]
  - RESPIRATORY ARREST [None]
  - SNEEZING [None]
  - THROAT IRRITATION [None]
